FAERS Safety Report 8048677-6 (Version None)
Quarter: 2012Q1

REPORT INFORMATION
  Report Type: 
  Country: None (occurrence: None)
  Receive Date: 20120117
  Receipt Date: 20120103
  Transmission Date: 20120608
  Serious: No
  Sender: FDA-Public Use
  Company Number: US-MYLANLABS-2011S1025766

PATIENT
  Age: 69 Year
  Sex: Male

DRUGS (3)
  1. ALFUZOSIN HYDROCHLORIDE [Suspect]
     Indication: PROSTATIC DISORDER
     Dates: start: 20111027, end: 20111116
  2. FISH OIL [Concomitant]
  3. GLUCOSAMINE [Concomitant]

REACTIONS (3)
  - MICTURITION URGENCY [None]
  - URINARY INCONTINENCE [None]
  - DRUG INEFFECTIVE [None]
